FAERS Safety Report 5924613-0 (Version None)
Quarter: 2008Q3

REPORT INFORMATION
  Report Type: 
  Country: None (occurrence: None)
  Receive Date: 20080909
  Receipt Date: 20080616
  Transmission Date: 20090109
  Serious: Yes (Death)
  Sender: FDA-Public Use
  Company Number: 163-20785-08021473

PATIENT
  Age: 61 Year
  Sex: Male

DRUGS (5)
  1. THALOMID [Suspect]
     Indication: MULTIPLE MYELOMA
     Dosage: 500 MG, 5 IN 1 D, ORAL ; 100-600MG, DAILY, ORAL
     Route: 048
     Dates: start: 20040304, end: 20060501
  2. THALOMID [Suspect]
     Indication: MULTIPLE MYELOMA
     Dosage: 500 MG, 5 IN 1 D, ORAL ; 100-600MG, DAILY, ORAL
     Route: 048
     Dates: start: 20060526, end: 20071201
  3. THALOMID [Suspect]
  4. DECADRON [Concomitant]
  5. PERCOCET [Concomitant]

REACTIONS (1)
  - MULTIPLE MYELOMA [None]
